FAERS Safety Report 8933514 (Version 2)
Quarter: 2013Q1

REPORT INFORMATION
  Report Type: Spontaneous
  Country: US (occurrence: US)
  Receive Date: 20121128
  Receipt Date: 20130228
  Transmission Date: 20140127
  Serious: No
  Sender: FDA-Public Use
  Company Number: US-ABBOTT-12P-163-1004250-00

PATIENT
  Sex: Male
  Weight: 97.61 kg

DRUGS (7)
  1. ANDROGEL [Suspect]
     Indication: BLOOD TESTOSTERONE DECREASED
     Dosage: 3 PUMPS DAILY
     Route: 061
     Dates: start: 201206, end: 201211
  2. ANDROGEL [Suspect]
     Dosage: 2 PUMPS DAILY
     Route: 061
     Dates: start: 201211
  3. ANDROGEL [Suspect]
     Dosage: 1 PUMP DAILY
     Route: 061
     Dates: end: 201212
  4. ANDROGEL [Suspect]
     Dosage: PACKETS
     Route: 061
     Dates: start: 201108, end: 201206
  5. ANDROGEL [Suspect]
     Route: 061
     Dates: start: 20120619, end: 201209
  6. LISINOPRIL [Concomitant]
     Indication: PRODUCT USED FOR UNKNOWN INDICATION
  7. VIAGRA [Concomitant]
     Indication: PRODUCT USED FOR UNKNOWN INDICATION

REACTIONS (2)
  - Incorrect dose administered [Not Recovered/Not Resolved]
  - Pruritus [Recovered/Resolved]
